FAERS Safety Report 24753251 (Version 1)
Quarter: 2024Q4

REPORT INFORMATION
  Report Type: Spontaneous
  Country: CN (occurrence: CN)
  Receive Date: 20241219
  Receipt Date: 20241219
  Transmission Date: 20250114
  Serious: Yes (Hospitalization)
  Sender: ROCHE
  Company Number: CN-CHEPLA-2024015637

PATIENT
  Age: 65 Year
  Sex: Male
  Weight: 59 kg

DRUGS (4)
  1. BEVACIZUMAB [Suspect]
     Active Substance: BEVACIZUMAB
     Indication: Rectal cancer
     Dosage: APPROVAL NO. GYZZ S20200013; INTRAVENOUS INFUSION
     Route: 042
     Dates: start: 20241205, end: 20241205
  2. BEVACIZUMAB [Suspect]
     Active Substance: BEVACIZUMAB
     Route: 042
  3. CAPECITABINE [Suspect]
     Active Substance: CAPECITABINE
     Indication: Rectal cancer
     Dosage: BID; APPROVAL NO. GYZZ H20073024
     Route: 048
     Dates: start: 20241204, end: 20241210
  4. OXALIPLATIN [Suspect]
     Active Substance: OXALIPLATIN
     Indication: Rectal cancer
     Dosage: APPROVAL NO. GYZZ H20213060; INTRAVENOUS INFUSION
     Route: 042
     Dates: start: 20241204, end: 20241204

REACTIONS (1)
  - Myelosuppression [Recovering/Resolving]

NARRATIVE: CASE EVENT DATE: 20241206
